FAERS Safety Report 6104323-X (Version None)
Quarter: 2009Q1

REPORT INFORMATION
  Report Type: 
  Country: None (occurrence: None)
  Receive Date: 20090305
  Receipt Date: 20090226
  Transmission Date: 20090719
  Serious: Yes (Hospitalization)
  Sender: FDA-Public Use
  Company Number: FR-CELGENEUS-056-21880-09021609

PATIENT
  Sex: Male

DRUGS (3)
  1. REVLIMID [Suspect]
     Indication: AMYLOIDOSIS
     Route: 048
     Dates: start: 20080905, end: 20080925
  2. MELPHALAN [Suspect]
     Indication: AMYLOIDOSIS
     Route: 065
     Dates: start: 20080905, end: 20080908
  3. DEXAMETHASONE [Suspect]
     Indication: AMYLOIDOSIS
     Route: 065
     Dates: start: 20080905, end: 20080908

REACTIONS (1)
  - AGRANULOCYTOSIS [None]
